FAERS Safety Report 23406421 (Version 1)
Quarter: 2024Q1

REPORT INFORMATION
  Report Type: Spontaneous
  Country: AR (occurrence: AR)
  Receive Date: 20240116
  Receipt Date: 20240116
  Transmission Date: 20240410
  Serious: Yes (Other)
  Sender: FDA-Public Use
  Company Number: AR-PFIZER INC-PV202400004597

PATIENT
  Age: 71 Year
  Sex: Female

DRUGS (3)
  1. IBRANCE [Suspect]
     Active Substance: PALBOCICLIB
     Indication: Breast cancer metastatic
     Dosage: UNK
     Dates: start: 20181107
  2. IBRANCE [Suspect]
     Active Substance: PALBOCICLIB
     Dosage: HALF A DAILY TABLET OF IBRANCE 125 MG
  3. LETROZOLE [Concomitant]
     Active Substance: LETROZOLE

REACTIONS (8)
  - Cerebrovascular accident [Not Recovered/Not Resolved]
  - Colitis [Not Recovered/Not Resolved]
  - Malaise [Not Recovered/Not Resolved]
  - Paraesthesia [Not Recovered/Not Resolved]
  - Dysstasia [Not Recovered/Not Resolved]
  - Product prescribing error [Unknown]
  - Off label use [Unknown]
  - Wrong technique in product usage process [Unknown]
